FAERS Safety Report 12729906 (Version 1)
Quarter: 2016Q3

REPORT INFORMATION
  Report Type: Spontaneous
  Country: US (occurrence: US)
  Receive Date: 20160909
  Receipt Date: 20160909
  Transmission Date: 20161109
  Serious: Yes (Other)
  Sender: FDA-Public Use
  Company Number: US-DEPOMED, INC.-US-2016DEP011544

PATIENT

DRUGS (12)
  1. NEURONTIN [Concomitant]
     Active Substance: GABAPENTIN
     Indication: PRODUCT USED FOR UNKNOWN INDICATION
     Dosage: UNK
  2. IBUPROFEN. [Concomitant]
     Active Substance: IBUPROFEN
     Indication: PAIN
     Dosage: 600 MG, 2-3 TIMES PER DAY
     Route: 048
  3. MOTRIN [Concomitant]
     Active Substance: IBUPROFEN
     Indication: PRODUCT USED FOR UNKNOWN INDICATION
     Dosage: UNK
  4. GRALISE [Suspect]
     Active Substance: GABAPENTIN
     Indication: NEURALGIA
     Dosage: 600 MG, QD
     Route: 048
     Dates: start: 20140707, end: 20160829
  5. GRALISE [Suspect]
     Active Substance: GABAPENTIN
     Indication: NEUROPATHY PERIPHERAL
     Dosage: 600 MG, QD, AFTER EVENING MEAL
     Route: 048
     Dates: start: 201512, end: 201607
  6. NORCO [Concomitant]
     Active Substance: ACETAMINOPHEN\HYDROCODONE BITARTRATE
     Indication: PAIN
     Dosage: 10/325, 1-2 DF, QD
     Route: 048
  7. XANAX [Concomitant]
     Active Substance: ALPRAZOLAM
     Indication: PRODUCT USED FOR UNKNOWN INDICATION
     Dosage: 0.25, 1/3 IN THE A.M.
     Route: 048
  8. NORVASC [Concomitant]
     Active Substance: AMLODIPINE BESYLATE
     Indication: PRODUCT USED FOR UNKNOWN INDICATION
     Dosage: 25/5 DF, QD
  9. LIPITOR [Concomitant]
     Active Substance: ATORVASTATIN CALCIUM
     Indication: PRODUCT USED FOR UNKNOWN INDICATION
     Dosage: UNK
  10. AMLODIPINE [Concomitant]
     Active Substance: AMLODIPINE BESYLATE
     Indication: PRODUCT USED FOR UNKNOWN INDICATION
     Dosage: 25 DF, QD
  11. GRALISE [Suspect]
     Active Substance: GABAPENTIN
     Dosage: 300 MG, QD
     Route: 048
     Dates: start: 20160719
  12. PREDNISONE. [Concomitant]
     Active Substance: PREDNISONE
     Indication: PRODUCT USED FOR UNKNOWN INDICATION
     Dosage: UNK

REACTIONS (15)
  - Insomnia [Not Recovered/Not Resolved]
  - Disturbance in attention [Not Recovered/Not Resolved]
  - Balance disorder [Unknown]
  - Decreased appetite [Not Recovered/Not Resolved]
  - Product use issue [Recovered/Resolved]
  - Anxiety [Recovering/Resolving]
  - Suicidal ideation [Recovering/Resolving]
  - Irritability [Not Recovered/Not Resolved]
  - Depressed mood [Not Recovered/Not Resolved]
  - Depression [Recovering/Resolving]
  - Confusional state [Unknown]
  - Weight decreased [Not Recovered/Not Resolved]
  - Fear [Not Recovered/Not Resolved]
  - Anger [Unknown]
  - Dizziness [Not Recovered/Not Resolved]

NARRATIVE: CASE EVENT DATE: 201512
